FAERS Safety Report 18290778 (Version 2)
Quarter: 2020Q4

REPORT INFORMATION
  Report Type: Spontaneous
  Country: GR (occurrence: GR)
  Receive Date: 20200922
  Receipt Date: 20201005
  Transmission Date: 20210113
  Serious: Yes (Other)
  Sender: FDA-Public Use
  Company Number: GR-BEH-2020122578

PATIENT
  Age: 80 Year
  Sex: Male
  Weight: 80 kg

DRUGS (2)
  1. CORTISONE [Concomitant]
     Active Substance: CORTISONE
  2. PRIVIGEN [Suspect]
     Active Substance: HUMAN IMMUNOGLOBULIN G
     Indication: GUILLAIN-BARRE SYNDROME
     Dosage: 100 GRAM, QD
     Route: 065

REACTIONS (3)
  - No adverse event [Unknown]
  - Underdose [Unknown]
  - Cataract [Unknown]
